FAERS Safety Report 16008727 (Version 1)
Quarter: 2019Q1

REPORT INFORMATION
  Report Type: Spontaneous
  Country: US (occurrence: US)
  Receive Date: 20190225
  Receipt Date: 20190225
  Transmission Date: 20190418
  Serious: No
  Sender: FDA-Public Use
  Company Number: US-TEVA-2019-US-1006011

PATIENT
  Sex: Female

DRUGS (1)
  1. AMOXICILLIN CAPSULES TEVA [Suspect]
     Active Substance: AMOXICILLIN
     Route: 065

REACTIONS (2)
  - Product dispensing error [None]
  - Product dispensing error [Unknown]

NARRATIVE: CASE EVENT DATE: 20190125
